FAERS Safety Report 13273129 (Version 3)
Quarter: 2021Q4

REPORT INFORMATION
  Report Type: Report from Study
  Country: KR (occurrence: KR)
  Receive Date: 20170227
  Receipt Date: 20211026
  Transmission Date: 20220303
  Serious: Yes (Death)
  Sender: FDA-Public Use
  Company Number: KR-KOWA-17JP000363AA

PATIENT
  Age: 93 Year
  Sex: Female
  Weight: 55 kg

DRUGS (5)
  1. PITAVASTATIN. [Suspect]
     Active Substance: PITAVASTATIN CALCIUM
     Indication: Hyperlipidaemia
     Dosage: 4 MG, QD
     Route: 048
     Dates: start: 20160718
  2. NEUROPEZIL [DONEPEZIL HYDROCHLORIDE] [Concomitant]
     Indication: Dementia
     Dosage: UNK, UNK
     Route: 048
     Dates: start: 20160718
  3. CLOPIREL [Concomitant]
     Indication: Cerebrovascular disorder
     Dosage: UNK, UNK
     Route: 048
     Dates: start: 20160718
  4. NEOCATINE [Concomitant]
     Indication: Cerebrovascular disorder
     Dosage: UNK, UNK
     Route: 048
     Dates: start: 20160718
  5. LEVAMLODIPINE\TELMISARTAN [Concomitant]
     Active Substance: LEVAMLODIPINE\TELMISARTAN
     Indication: Hypertension
     Dosage: UNK, UNK
     Route: 048
     Dates: start: 20160718

REACTIONS (1)
  - Bile duct cancer [Fatal]
